FAERS Safety Report 21866039 (Version 1)
Quarter: 2023Q1

REPORT INFORMATION
  Report Type: Report from Study
  Country: CA (occurrence: CA)
  Receive Date: 20230116
  Receipt Date: 20230116
  Transmission Date: 20230417
  Serious: Yes (Death, Other)
  Sender: FDA-Public Use
  Company Number: CA-GLAXOSMITHKLINE-CA2023005406

PATIENT

DRUGS (1)
  1. DOSTARLIMAB [Suspect]
     Active Substance: DOSTARLIMAB
     Indication: Endometrial cancer
     Dosage: UNK, 500 MG EVERY 3 WEEKS FOR DOSE 1-4; THEN 1000 MG EVERY 6 WEEKS
     Dates: start: 20221214

REACTIONS (1)
  - Death [Fatal]
